FAERS Safety Report 9325653 (Version 1)
Quarter: 2013Q2

REPORT INFORMATION
  Report Type: Spontaneous
  Country: CA (occurrence: CA)
  Receive Date: 20130604
  Receipt Date: 20130604
  Transmission Date: 20140414
  Serious: Yes (Life-Threatening, Other)
  Sender: FDA-Public Use
  Company Number: CA-ELI_LILLY_AND_COMPANY-CA201210001773

PATIENT
  Age: 57 Year
  Sex: Female
  Weight: 63.5 kg

DRUGS (1)
  1. CYMBALTA [Suspect]
     Indication: ANALGESIC THERAPY
     Dosage: 30 MG, UNKNOWN
     Route: 065
     Dates: start: 20120104, end: 20120104

REACTIONS (3)
  - Serotonin syndrome [Recovered/Resolved]
  - Delirium [Unknown]
  - Off label use [Unknown]
